FAERS Safety Report 20172707 (Version 1)
Quarter: 2021Q4

REPORT INFORMATION
  Report Type: Spontaneous
  Country: US (occurrence: US)
  Receive Date: 20211211
  Receipt Date: 20211211
  Transmission Date: 20220304
  Serious: Yes (Hospitalization, Other)
  Sender: FDA-Public Use
  Company Number: US-MSNLABS-2021MSNLIT00648

PATIENT

DRUGS (2)
  1. CAPECITABINE [Suspect]
     Active Substance: CAPECITABINE
     Indication: Anal cancer stage II
     Route: 065
  2. NYSTATIN [Concomitant]
     Active Substance: NYSTATIN
     Indication: Oral candidiasis
     Route: 048

REACTIONS (1)
  - Impaired gastric emptying [Recovered/Resolved]
